FAERS Safety Report 18236098 (Version 2)
Quarter: 2020Q3

REPORT INFORMATION
  Report Type: Report from Study
  Country: ES (occurrence: ES)
  Receive Date: 20200906
  Receipt Date: 20200910
  Transmission Date: 20201103
  Serious: Yes (Hospitalization)
  Sender: FDA-Public Use
  Company Number: NVSC2020ES240392

PATIENT
  Age: 55 Year
  Sex: Female

DRUGS (6)
  1. AXITINIB [Suspect]
     Active Substance: AXITINIB
     Indication: PRODUCT USED FOR UNKNOWN INDICATION
     Dosage: 5 MG, Q12H
     Route: 065
     Dates: start: 20181024, end: 20190116
  2. AXITINIB [Suspect]
     Active Substance: AXITINIB
     Dosage: 2 MG, BID
     Route: 065
     Dates: start: 20190703
  3. SANDOSTATIN LAR DEPOT [Suspect]
     Active Substance: OCTREOTIDE ACETATE
     Indication: PRODUCT USED FOR UNKNOWN INDICATION
     Dosage: 30 MG, QMO (MONTHLY)
     Route: 065
     Dates: start: 20191024
  4. SANDOSTATIN LAR DEPOT [Suspect]
     Active Substance: OCTREOTIDE ACETATE
  5. AXITINIB [Suspect]
     Active Substance: AXITINIB
     Dosage: 3 MG, BID
     Route: 065
     Dates: start: 20190130, end: 20190703
  6. SANDOSTATIN LAR DEPOT [Suspect]
     Active Substance: OCTREOTIDE ACETATE

REACTIONS (2)
  - Acute coronary syndrome [Not Recovered/Not Resolved]
  - Myocardial infarction [Not Recovered/Not Resolved]

NARRATIVE: CASE EVENT DATE: 20200814
